FAERS Safety Report 9912121 (Version 1)
Quarter: 2014Q1

REPORT INFORMATION
  Report Type: Report from Study
  Country: US (occurrence: US)
  Receive Date: 20140219
  Receipt Date: 20140219
  Transmission Date: 20141002
  Serious: Yes (Hospitalization)
  Sender: FDA-Public Use
  Company Number: US-BRISTOL-MYERS SQUIBB COMPANY-20174173

PATIENT
  Age: 34 Year
  Sex: Female

DRUGS (7)
  1. YERVOY [Suspect]
     Dates: start: 20140124
  2. REMERON [Concomitant]
  3. CELEXA [Concomitant]
  4. PREDNISONE [Concomitant]
  5. MARINOL [Concomitant]
  6. ZOFRAN [Concomitant]
  7. OXYCODONE [Concomitant]

REACTIONS (4)
  - Swelling [Unknown]
  - Pyrexia [Unknown]
  - Rhinorrhoea [Unknown]
  - Abdominal distension [Unknown]
